FAERS Safety Report 14051658 (Version 1)
Quarter: 2017Q4

REPORT INFORMATION
  Report Type: Report from Study
  Country: US (occurrence: US)
  Receive Date: 20171005
  Receipt Date: 20171005
  Transmission Date: 20180321
  Serious: Yes (Hospitalization, Other)
  Sender: FDA-Public Use
  Company Number: US-GILEAD-2017-0296302

PATIENT
  Age: 49 Year
  Sex: Male

DRUGS (2)
  1. AMBRISENTAN [Suspect]
     Active Substance: AMBRISENTAN
     Indication: PULMONARY HYPERTENSION
     Dosage: 10 MG, QD
     Route: 065
     Dates: start: 20150403
  2. ADCIRCA [Concomitant]
     Active Substance: TADALAFIL

REACTIONS (5)
  - Treatment noncompliance [Unknown]
  - Malaise [Recovering/Resolving]
  - Loss of consciousness [Unknown]
  - Intentional product use issue [Unknown]
  - Emotional disorder [Recovering/Resolving]
